FAERS Safety Report 23514052 (Version 1)
Quarter: 2024Q1

REPORT INFORMATION
  Report Type: Spontaneous
  Country: US (occurrence: None)
  Receive Date: 20240212
  Receipt Date: 20240212
  Transmission Date: 20240409
  Serious: Yes (Hospitalization)
  Sender: FDA-Public Use
  Company Number: None

PATIENT
  Age: 56 Year
  Sex: Female

DRUGS (2)
  1. EVEROLIMUS [Suspect]
     Active Substance: EVEROLIMUS
     Indication: Heart transplant
     Dosage: FREQUENCY : DAILY;?
     Route: 048
     Dates: start: 20200722
  2. ENVARSUS XR [Concomitant]
     Active Substance: TACROLIMUS

REACTIONS (3)
  - Therapy interrupted [None]
  - Intestinal obstruction [None]
  - Transplant rejection [None]

NARRATIVE: CASE EVENT DATE: 20240114
